FAERS Safety Report 5108393-7 (Version None)
Quarter: 2006Q3

REPORT INFORMATION
  Report Type: 
  Country: None (occurrence: None)
  Receive Date: 20060919
  Receipt Date: 20060831
  Transmission Date: 20061208
  Serious: Yes (Life-Threatening)
  Sender: FDA-Public Use
  Company Number: US-BOEHRINGER INGELHEIM PHARMACEUTICALS, INC.-2006-BP-10299BP

PATIENT
  Sex: Male

DRUGS (2)
  1. AGGRENOX [Suspect]
     Indication: VASCULAR SHUNT
     Route: 065
     Dates: start: 20050902, end: 20060403
  2. PLACEBO CAPSULES (BLIND) [Suspect]
     Indication: VASCULAR SHUNT
     Dates: start: 20050902, end: 20060403

REACTIONS (5)
  - ARTHRALGIA [None]
  - ARTHROPATHY [None]
  - GASTRIC ULCER HAEMORRHAGE [None]
  - HAEMATOCRIT DECREASED [None]
  - JOINT SWELLING [None]
